FAERS Safety Report 17913653 (Version 1)
Quarter: 2020Q2

REPORT INFORMATION
  Report Type: Spontaneous
  Country: CN (occurrence: CN)
  Receive Date: 20200618
  Receipt Date: 20200618
  Transmission Date: 20200714
  Serious: Yes (Life-Threatening, Hospitalization, Other)
  Sender: FDA-Public Use
  Company Number: CN-BAYER-2020-114821

PATIENT
  Age: 75 Year
  Sex: Female
  Weight: 58 kg

DRUGS (3)
  1. GLUCOBAY [Interacting]
     Active Substance: ACARBOSE
     Indication: DIABETES MELLITUS
     Dosage: UNK
     Dates: start: 20181011, end: 20200531
  2. USLIN [Interacting]
     Active Substance: INSULIN HUMAN
     Indication: DIABETES MELLITUS
     Dosage: 15 U, BID
     Route: 058
     Dates: start: 20181011, end: 20200531
  3. GLUCOBAY [Suspect]
     Active Substance: ACARBOSE
     Indication: DIABETES MELLITUS
     Dosage: 0.1 G, TID
     Route: 048
     Dates: start: 20181011, end: 20200531

REACTIONS (7)
  - Loss of consciousness [Recovering/Resolving]
  - Hypoglycaemic coma [Recovering/Resolving]
  - Hyperhidrosis [Recovering/Resolving]
  - Unresponsive to stimuli [Recovering/Resolving]
  - Anal incontinence [Recovering/Resolving]
  - Drug interaction [None]
  - Urinary incontinence [Recovering/Resolving]

NARRATIVE: CASE EVENT DATE: 20200531
